FAERS Safety Report 8920743 (Version 1)
Quarter: 2012Q4

REPORT INFORMATION
  Report Type: 
  Country: US (occurrence: US)
  Receive Date: 20121122
  Receipt Date: 20121122
  Transmission Date: 20130627
  Serious: Yes (Other)
  Sender: FDA-Public Use
  Company Number: CHPA2012US023478

PATIENT
  Age: 62 Year
  Sex: Female

DRUGS (2)
  1. BUCKLEY^S COUGH MIXTURE [Suspect]
     Indication: THROAT IRRITATION
     Dosage: 10 ml twice daily
  2. DELSYM [Concomitant]
     Route: 048

REACTIONS (3)
  - Bronchitis [Not Recovered/Not Resolved]
  - Myalgia [Not Recovered/Not Resolved]
  - Incorrect dose administered [Unknown]
